FAERS Safety Report 4533406-0 (Version None)
Quarter: 2004Q4

REPORT INFORMATION
  Report Type: 
  Country: None (occurrence: None)
  Receive Date: 20041221
  Receipt Date: 20040907
  Transmission Date: 20050328
  Serious: Yes (Other)
  Sender: FDA-Public Use
  Company Number: FR-ROCHE-380344

PATIENT
  Age: 52 Year
  Sex: Male

DRUGS (4)
  1. RIVOTRIL [Suspect]
     Route: 048
     Dates: start: 20010915, end: 20040915
  2. MANTADIX [Concomitant]
     Indication: FIBROMYALGIA
     Dosage: DISCONTINUED PRIOR TO CLONAZEPAM AT AN UNKNOWN DATE.
  3. TAHOR [Concomitant]
  4. MORPHINE [Concomitant]

REACTIONS (3)
  - RETINAL DISORDER [None]
  - RETINAL PIGMENT EPITHELIOPATHY [None]
  - VISUAL FIELD DEFECT [None]
